FAERS Safety Report 6305280-3 (Version None)
Quarter: 2009Q3

REPORT INFORMATION
  Report Type: 
  Country: None (occurrence: None)
  Receive Date: 20090811
  Receipt Date: 20090731
  Transmission Date: 20100115
  Serious: Yes (Other)
  Sender: FDA-Public Use
  Company Number: PHHY2009MX32155

PATIENT
  Sex: Female

DRUGS (2)
  1. DIOVAN HCT [Suspect]
     Indication: HYPERTENSION
     Dosage: 1 TABLET (80/12.5 MG) PER DAY
     Route: 048
     Dates: start: 20081101
  2. BIOCICLON M [Concomitant]
     Indication: DIABETES MELLITUS
     Dosage: 1 TABLET PER DAY

REACTIONS (5)
  - BALANCE DISORDER [None]
  - DEHYDRATION [None]
  - DISCOMFORT [None]
  - GASTROINTESTINAL INFECTION [None]
  - HYPERGLYCAEMIA [None]
